FAERS Safety Report 4443794-1 (Version None)
Quarter: 2004Q3

REPORT INFORMATION
  Report Type: 
  Country: None (occurrence: None)
  Receive Date: 20040802
  Receipt Date: 20040630
  Transmission Date: 20050211
  Serious: No
  Sender: FDA-Public Use
  Company Number: 2004-118014-NL

PATIENT
  Age: 39 Year
  Sex: Female
  Weight: 67.3 kg

DRUGS (3)
  1. NUVARING [Suspect]
     Indication: MENSTRUAL DISORDER
     Dosage: DF DAILY VAGINAL
     Route: 067
     Dates: start: 20040401
  2. NUVARING [Suspect]
     Indication: MIGRAINE PROPHYLAXIS
     Dosage: DF DAILY VAGINAL
     Route: 067
     Dates: start: 20040401
  3. MULTIVITAMIN [Concomitant]

REACTIONS (2)
  - METRORRHAGIA [None]
  - VAGINAL CONTRACEPTIVE DEVICE EXPELLED [None]
